FAERS Safety Report 17324254 (Version 1)
Quarter: 2020Q1

REPORT INFORMATION
  Report Type: Spontaneous
  Country: CN (occurrence: CN)
  Receive Date: 20200127
  Receipt Date: 20200127
  Transmission Date: 20200409
  Serious: Yes (Other)
  Sender: FDA-Public Use
  Company Number: CN-BAXTER-2020BAX001592

PATIENT
  Age: 57 Year
  Sex: Male
  Weight: 82 kg

DRUGS (15)
  1. ETOPOSIDE. [Suspect]
     Active Substance: ETOPOSIDE
     Indication: PLASMA CELL MYELOMA
     Dosage: 40 MG/M2 DAYS 2-5
     Route: 041
     Dates: start: 20191120, end: 20191124
  2. NUO XIN [Suspect]
     Active Substance: CISPLATIN
     Indication: PLASMA CELL MYELOMA
     Dosage: 10 MG/M2 DAYS 2-5
     Route: 041
     Dates: start: 20191120, end: 20191124
  3. ETOPOSIDE. [Suspect]
     Active Substance: ETOPOSIDE
     Dosage: DOSE RE-INTRODUCED
     Route: 041
  4. ENDOXAN [Suspect]
     Active Substance: CYCLOPHOSPHAMIDE
     Indication: PLASMA CELL MYELOMA
     Dosage: 400 MG/M2 DAY 2-5
     Route: 041
     Dates: start: 20191120, end: 20191124
  5. DEXAMETHASONE SODIUM PHOSPHATE. [Suspect]
     Active Substance: DEXAMETHASONE SODIUM PHOSPHATE
     Dosage: DOSE RE-INTRODUCED
     Route: 041
  6. VELCADE [Suspect]
     Active Substance: BORTEZOMIB
     Indication: PLASMA CELL MYELOMA
     Dosage: 1.3 MG/M2 DAYS 1, 4, 8 AND 11
     Route: 041
     Dates: start: 20191119, end: 20191129
  7. VELCADE [Suspect]
     Active Substance: BORTEZOMIB
     Dosage: DOSE RE-INTRODUCED
     Route: 041
  8. NUO XIN [Suspect]
     Active Substance: CISPLATIN
     Dosage: DOSE RE-INTRODUCED
     Route: 041
  9. THALIDOMIDE [Suspect]
     Active Substance: THALIDOMIDE
     Indication: PLASMA CELL MYELOMA
     Dosage: FORM OF ADMINISTRATION - TABLET, DAY 2-9
     Route: 048
     Dates: start: 20191120, end: 20191127
  10. THALIDOMIDE [Suspect]
     Active Substance: THALIDOMIDE
     Dosage: FORM OF ADMINISTRATION - TABLET, DOSE RE-INTRODUCED
     Route: 048
  11. FORCED [EPIRUBICIN HYDROCHLORIDE] [Suspect]
     Active Substance: EPIRUBICIN HYDROCHLORIDE
     Dosage: DOSE RE-INTRODUCED
     Route: 041
  12. ENDOXAN [Suspect]
     Active Substance: CYCLOPHOSPHAMIDE
     Dosage: DOSE RE-INTRODUCED
     Route: 041
  13. FORCED [EPIRUBICIN HYDROCHLORIDE] [Suspect]
     Active Substance: EPIRUBICIN HYDROCHLORIDE
     Indication: PLASMA CELL MYELOMA
     Dosage: 13 MG/M2 DAYS 2-5
     Route: 041
     Dates: start: 20191120, end: 20191124
  14. DEXAMETHASONE SODIUM PHOSPHATE. [Suspect]
     Active Substance: DEXAMETHASONE SODIUM PHOSPHATE
     Indication: PLASMA CELL MYELOMA
     Dosage: DAYS 2-5
     Route: 041
     Dates: start: 20191120, end: 20191124
  15. OXYGEN. [Concomitant]
     Active Substance: OXYGEN
     Indication: SUPPORTIVE CARE
     Dosage: ROUTE- INHALATION
     Route: 050

REACTIONS (5)
  - Bone marrow failure [Recovering/Resolving]
  - Nausea [Unknown]
  - Dizziness [Recovering/Resolving]
  - Chest discomfort [Recovering/Resolving]
  - Visual impairment [Unknown]

NARRATIVE: CASE EVENT DATE: 20191127
